FAERS Safety Report 8763276 (Version 1)
Quarter: 2012Q4

REPORT INFORMATION
  Report Type: 
  Country: GB (occurrence: GB)
  Receive Date: 20120831
  Receipt Date: 20120831
  Transmission Date: 20130627
  Serious: Yes (Death, Other)
  Sender: FDA-Public Use
  Company Number: GB-MPIJNJ-2012-05945

PATIENT

DRUGS (1)
  1. VELCADE [Suspect]
     Indication: MULTIPLE MYELOMA
     Dosage: UNK
     Route: 065
     Dates: start: 20111107, end: 20120514

REACTIONS (4)
  - Disease progression [Fatal]
  - Pathological fracture [Unknown]
  - Bone lesion [Unknown]
  - Drug ineffective [Unknown]
